FAERS Safety Report 18940568 (Version 1)
Quarter: 2021Q1

REPORT INFORMATION
  Report Type: Spontaneous
  Country: IT (occurrence: IT)
  Receive Date: 20210225
  Receipt Date: 20210225
  Transmission Date: 20210420
  Serious: Yes (Hospitalization)
  Sender: FDA-Public Use
  Company Number: IT-ROCHE-2776798

PATIENT
  Age: 57 Year
  Sex: Female

DRUGS (6)
  1. RIVOTRIL [Suspect]
     Active Substance: CLONAZEPAM
     Indication: INTENTIONAL SELF-INJURY
     Dosage: TOTAL
     Route: 048
     Dates: start: 20201211, end: 20201212
  2. DEPAKIN [Concomitant]
     Active Substance: VALPROATE SODIUM
     Route: 048
  3. BRINTELLIX [Concomitant]
     Active Substance: VORTIOXETINE HYDROBROMIDE
     Route: 048
  4. RESILIENT [Concomitant]
     Active Substance: LITHIUM SULFATE
  5. TOPAMAX [Concomitant]
     Active Substance: TOPIRAMATE
  6. DEPAKIN [Concomitant]
     Active Substance: VALPROATE SODIUM

REACTIONS (4)
  - Speech disorder [Unknown]
  - Cognitive disorder [Unknown]
  - Drug abuse [Unknown]
  - Somnolence [Unknown]

NARRATIVE: CASE EVENT DATE: 20201212
